FAERS Safety Report 8769393 (Version 2)
Quarter: 2012Q4

REPORT INFORMATION
  Report Type: 
  Country: US (occurrence: US)
  Receive Date: 20120905
  Receipt Date: 20121101
  Transmission Date: 20130627
  Serious: Yes (Other)
  Sender: FDA-Public Use
  Company Number: US-PFIZER INC-2012216508

PATIENT
  Age: 65 Year
  Sex: Female
  Weight: 88.44 kg

DRUGS (15)
  1. CELEBREX [Suspect]
     Dosage: 200 mg, 2x/day
     Route: 048
  2. LOPID [Suspect]
     Dosage: 600 mg, 2x/day
     Route: 048
  3. VENTOLIN HFA [Concomitant]
     Dosage: 2 puffs four times a day as needed
     Route: 048
  4. CARISOPRODOL [Concomitant]
     Dosage: 350 mg, as needed (at bedtime)
  5. FIORICET [Concomitant]
     Indication: HEADACHE
     Dosage: 50-325-40 MG every 8 hrs as needed
     Route: 048
  6. POTASSIUM CHLORIDE CRYS CR [Concomitant]
     Dosage: 10 mEq, 1x/day
     Route: 048
  7. WARFARIN SODIUM [Concomitant]
     Dosage: 2.5 Mon, Wed Friday, and 5 mg other 4 days/wk
  8. LOPRESSOR [Concomitant]
     Dosage: 100 mg tab, take 2 every am, 2 at bedtime
     Route: 048
  9. PRAVACHOL [Concomitant]
     Dosage: 20 mg, 1x/day
     Route: 048
  10. LASIX [Concomitant]
     Dosage: 40 mg, 1x/day
     Route: 048
  11. FISH OIL [Concomitant]
     Dosage: 1000 mg, 1x/day
     Route: 048
  12. VITAMIN E [Concomitant]
     Dosage: 100 IU, 1x/day
     Route: 048
  13. COUMADIN [Concomitant]
     Dosage: 3 mg, 1x/day
  14. METOPROLOL TARTRATE [Concomitant]
     Dosage: 200 mg, 2x/day
  15. PRAVASTATIN [Concomitant]
     Dosage: 20 mg, 1x/day

REACTIONS (11)
  - Mitral valve stenosis [Unknown]
  - Chest pain [Unknown]
  - Dyspnoea exertional [Unknown]
  - Orthopnoea [Unknown]
  - Dyspnoea [Unknown]
  - Palpitations [Unknown]
  - Oedema peripheral [Unknown]
  - Impaired work ability [Unknown]
  - Arthralgia [Unknown]
  - Fatigue [Unknown]
  - Anxiety [Unknown]
